FAERS Safety Report 13160818 (Version 1)
Quarter: 2017Q1

REPORT INFORMATION
  Report Type: Spontaneous
  Country: US (occurrence: US)
  Receive Date: 20170130
  Receipt Date: 20170130
  Transmission Date: 20170428
  Serious: No
  Sender: FDA-Public Use
  Company Number: US-ASTRAZENECA-2017SE08771

PATIENT
  Sex: Male

DRUGS (11)
  1. SYMBICORT [Suspect]
     Active Substance: BUDESONIDE\FORMOTEROL FUMARATE DIHYDRATE
     Indication: CHRONIC OBSTRUCTIVE PULMONARY DISEASE
     Dosage: DOSE UNKNOWN
     Route: 055
  2. LISINOPRIL. [Suspect]
     Active Substance: LISINOPRIL
     Dosage: DOSE UNKNOWN
     Route: 048
  3. VITAMIN D [Concomitant]
     Active Substance: CHOLECALCIFEROL
     Dosage: 50,000IU
  4. CRESTOR [Concomitant]
     Active Substance: ROSUVASTATIN CALCIUM
  5. MULTIVIT [Concomitant]
     Active Substance: VITAMINS
  6. HUMALOG [Concomitant]
     Active Substance: INSULIN LISPRO
  7. DILAUDID [Concomitant]
     Active Substance: HYDROMORPHONE HYDROCHLORIDE
  8. PROVENTIL [Concomitant]
     Active Substance: ALBUTEROL
  9. GABAPENTIN. [Concomitant]
     Active Substance: GABAPENTIN
  10. ASA [Concomitant]
     Active Substance: ASPIRIN
  11. LEVOTHRYXINE [Concomitant]

REACTIONS (2)
  - Intentional product misuse [Unknown]
  - Oedema peripheral [Recovered/Resolved]
